FAERS Safety Report 7981739-8 (Version None)
Quarter: 2011Q4

REPORT INFORMATION
  Report Type: 
  Country: None (occurrence: None)
  Receive Date: 20111215
  Receipt Date: 20111212
  Transmission Date: 20120403
  Serious: Yes (Life-Threatening, Other)
  Sender: FDA-Public Use
  Company Number: CH-ROXANE LABORATORIES, INC.-2011-RO-01794RO

PATIENT
  Age: 5 Year
  Sex: Male

DRUGS (3)
  1. ACETAMINOPHEN [Suspect]
     Route: 054
  2. DIAZEPAM [Suspect]
     Indication: COMPLEX PARTIAL SEIZURES
     Route: 054
  3. DIAZEPAM [Suspect]
     Indication: GRAND MAL CONVULSION
     Route: 054

REACTIONS (5)
  - RESPIRATORY ARREST [None]
  - HYPERCAPNIA [None]
  - RESPIRATORY ACIDOSIS [None]
  - VOMITING [None]
  - HYPOVENTILATION [None]
